FAERS Safety Report 12177329 (Version 1)
Quarter: 2016Q1

REPORT INFORMATION
  Report Type: Spontaneous
  Country: US (occurrence: US)
  Receive Date: 20160315
  Receipt Date: 20160315
  Transmission Date: 20160526
  Serious: No
  Sender: FDA-Public Use
  Company Number: US-ZYDUS-010453

PATIENT
  Sex: Female

DRUGS (1)
  1. NITROGLYCERIN. [Suspect]
     Active Substance: NITROGLYCERIN
     Indication: PRODUCT USED FOR UNKNOWN INDICATION
     Dosage: 0.6 MG/HR 1 PATCH/DAY 12-14 HRS.
     Route: 061

REACTIONS (2)
  - Skin haemorrhage [Unknown]
  - Erythema [Unknown]

NARRATIVE: CASE EVENT DATE: 20150520
